FAERS Safety Report 4577543-3 (Version None)
Quarter: 2005Q1

REPORT INFORMATION
  Report Type: 
  Country: None (occurrence: None)
  Receive Date: 20050208
  Receipt Date: 20050131
  Transmission Date: 20050727
  Serious: Yes (Hospitalization)
  Sender: FDA-Public Use
  Company Number: 2005CG00233

PATIENT
  Age: 74 Year
  Sex: Female

DRUGS (10)
  1. CRESTOR [Suspect]
     Dosage: 10 MG DAILY PO
     Route: 048
     Dates: start: 20040419, end: 20040604
  2. CELIPROLOL [Suspect]
     Indication: ESSENTIAL HYPERTENSION
     Dosage: 200 MG DAILY PO
     Route: 048
     Dates: start: 20040419, end: 20040604
  3. CLERIDIUM [Suspect]
     Indication: ANGINA PECTORIS
     Dosage: 150 MG BID PO
     Route: 048
     Dates: end: 20040604
  4. KARDEGIC [Concomitant]
  5. ACEBUTOLOL [Concomitant]
  6. DIALGIREX [Concomitant]
  7. VIOXX [Concomitant]
  8. LANZOR [Concomitant]
  9. TEMESTA [Concomitant]
  10. TRIATEC [Concomitant]

REACTIONS (7)
  - ABDOMINAL DISTENSION [None]
  - ABDOMINAL PAIN [None]
  - ANGINA PECTORIS [None]
  - CONDITION AGGRAVATED [None]
  - GAMMA-GLUTAMYLTRANSFERASE INCREASED [None]
  - TRANSAMINASES INCREASED [None]
  - VOMITING [None]
